FAERS Safety Report 11197908 (Version 2)
Quarter: 2015Q3

REPORT INFORMATION
  Report Type: Spontaneous
  Country: US (occurrence: US)
  Receive Date: 20150617
  Receipt Date: 20150917
  Transmission Date: 20151125
  Serious: No
  Sender: FDA-Public Use
  Company Number: US-GALDERMA-US15002979

PATIENT
  Age: 61 Year
  Sex: Female

DRUGS (9)
  1. MAKEUP FOUNDATION [Concomitant]
  2. CERAVE [Concomitant]
     Active Substance: TITANIUM DIOXIDE\ZINC OXIDE
     Indication: THERAPEUTIC SKIN CARE TOPICAL
     Dates: end: 2011
  3. LISINOPRIL. [Concomitant]
     Active Substance: LISINOPRIL
     Indication: HYPERTENSION
     Dates: end: 1996
  4. LEVOTHYROXINE. [Concomitant]
     Active Substance: LEVOTHYROXINE
     Indication: HYPOTHYROIDISM
     Dates: end: 1999
  5. PANTOPRAZOLE [Concomitant]
     Active Substance: PANTOPRAZOLE SODIUM
     Indication: ULCER
     Dates: end: 2013
  6. RECLAST [Concomitant]
     Active Substance: ZOLEDRONIC ACID
     Indication: OSTEOPENIA
     Dates: end: 2012
  7. MIRVASO [Suspect]
     Active Substance: BRIMONIDINE TARTRATE
     Indication: ROSACEA
     Dosage: 0.33%
     Route: 061
     Dates: start: 201409
  8. HYDROCHLOROTHIAZIDE. [Concomitant]
     Active Substance: HYDROCHLOROTHIAZIDE
     Indication: HYPERTENSION
     Dates: end: 2014
  9. TERBINAFINE. [Concomitant]
     Active Substance: TERBINAFINE
     Indication: TINEA PEDIS
     Dates: end: 201503

REACTIONS (4)
  - Rash erythematous [Recovered/Resolved]
  - Drug effect decreased [Not Recovered/Not Resolved]
  - Erythema [Recovered/Resolved]
  - Flushing [Recovered/Resolved]

NARRATIVE: CASE EVENT DATE: 201409
